FAERS Safety Report 21346240 (Version 2)
Quarter: 2022Q3

REPORT INFORMATION
  Report Type: Spontaneous
  Country: US (occurrence: US)
  Receive Date: 20220917
  Receipt Date: 20220926
  Transmission Date: 20221027
  Serious: No
  Sender: FDA-Public Use
  Company Number: US-AMGEN-USASP2022158965

PATIENT
  Age: 74 Year
  Sex: Female

DRUGS (6)
  1. REPATHA [Suspect]
     Active Substance: EVOLOCUMAB
     Indication: Blood cholesterol increased
     Dosage: 140 MILLIGRAM, Q2WK
     Route: 058
     Dates: start: 202201
  2. REPATHA [Suspect]
     Active Substance: EVOLOCUMAB
     Indication: Myocardial infarction
  3. LISINOPRIL [Concomitant]
     Active Substance: LISINOPRIL
     Dosage: 20/12.5 EVERY MORNING
     Dates: start: 2014
  4. ATORVASTATIN [Concomitant]
     Active Substance: ATORVASTATIN
     Dosage: 40MG AT BEDTIME
  5. AMLODIPINE [Concomitant]
     Active Substance: AMLODIPINE BESYLATE
     Dosage: 5MG AT BEDTIME
     Dates: start: 2019
  6. ASPIRIN [Concomitant]
     Active Substance: ASPIRIN
     Dosage: 81MG EVERY MORNING

REACTIONS (5)
  - Skin disorder [Unknown]
  - Contusion [Unknown]
  - Limb injury [Unknown]
  - Skin injury [Unknown]
  - Device use confusion [Unknown]

NARRATIVE: CASE EVENT DATE: 20220101
